FAERS Safety Report 7216251-7 (Version None)
Quarter: 2011Q1

REPORT INFORMATION
  Report Type: 
  Country: None (occurrence: None)
  Receive Date: 20110105
  Receipt Date: 20110105
  Transmission Date: 20110831
  Serious: Yes (Life-Threatening, Disabling, Other)
  Sender: FDA-Public Use
  Company Number: None

PATIENT
  Age: 54 Year
  Sex: Female
  Weight: 61.2356 kg

DRUGS (3)
  1. OXYCODONE 15 MG IMMEDIATE RELEASE (ROXYCODONE) [Suspect]
     Indication: BACK PAIN
     Dosage: 1/2 TABLET 4XS DAILY
     Dates: start: 20101202
  2. OXYCODONE 15 MG IMMEDIATE RELEASE (ROXYCODONE) [Suspect]
     Indication: BACK PAIN
     Dosage: 1/2 TABLET 4XS DAILY
     Dates: start: 20101119
  3. OXYCODONE 15 MG IMMEDIATE RELEASE (ROXYCODONE) [Suspect]
     Indication: BACK PAIN
     Dosage: 1/2 TABLET 4XS DAILY
     Dates: start: 20101219

REACTIONS (7)
  - MIOSIS [None]
  - TREMOR [None]
  - MALAISE [None]
  - DECREASED APPETITE [None]
  - HEADACHE [None]
  - INSOMNIA [None]
  - PRODUCT QUALITY ISSUE [None]
